FAERS Safety Report 5935894-1 (Version None)
Quarter: 2008Q4

REPORT INFORMATION
  Report Type: 
  Country: None (occurrence: None)
  Receive Date: 20081030
  Receipt Date: 20070905
  Transmission Date: 20090506
  Serious: No
  Sender: FDA-Public Use
  Company Number: A0681140A

PATIENT
  Sex: Male

DRUGS (1)
  1. IMITREX [Suspect]
     Indication: MIGRAINE
     Route: 058

REACTIONS (3)
  - INCORRECT ROUTE OF DRUG ADMINISTRATION [None]
  - INJECTION SITE PAIN [None]
  - INTENTIONAL DRUG MISUSE [None]
